FAERS Safety Report 8810391 (Version 5)
Quarter: 2013Q2

REPORT INFORMATION
  Report Type: Spontaneous
  Country: US (occurrence: US)
  Receive Date: 20120926
  Receipt Date: 20130416
  Transmission Date: 20140414
  Serious: Yes (Hospitalization, Other)
  Sender: FDA-Public Use
  Company Number: US-009507513-1209USA006183

PATIENT
  Sex: Female
  Weight: 48.73 kg

DRUGS (4)
  1. FOSAMAX [Suspect]
     Indication: BONE DISORDER
     Dosage: 10 MG, QD
     Route: 048
     Dates: start: 20010523, end: 200301
  2. FOSAMAX [Suspect]
     Dosage: 70 MG, QW
     Route: 048
     Dates: start: 20031229, end: 200606
  3. ACTONEL [Suspect]
     Indication: OSTEOPOROSIS
     Dosage: 35 MG, UNK
     Dates: start: 2006, end: 200806
  4. VITAMINS (UNSPECIFIED) [Concomitant]
     Dosage: UNK, QD
     Dates: start: 1987

REACTIONS (42)
  - Femur fracture [Unknown]
  - Skin cancer [Unknown]
  - Medical device removal [Unknown]
  - Open reduction of fracture [Unknown]
  - Squamous cell carcinoma [Unknown]
  - Skin neoplasm excision [Unknown]
  - Medical device removal [Unknown]
  - Knee operation [Unknown]
  - Bundle branch block left [Unknown]
  - Osteoporosis [Unknown]
  - Device failure [Unknown]
  - Left ventricular hypertrophy [Unknown]
  - Kyphosis [Unknown]
  - Hypertension [Unknown]
  - Somnolence [Unknown]
  - Head injury [Unknown]
  - Osteopenia [Unknown]
  - Carotid arteriosclerosis [Unknown]
  - Cerebral small vessel ischaemic disease [Unknown]
  - Device failure [Unknown]
  - Pain [Unknown]
  - Blood glucose increased [Unknown]
  - Pain [Unknown]
  - Skin disorder [Unknown]
  - Low turnover osteopathy [Unknown]
  - Fibrocystic breast disease [Unknown]
  - Haemorrhoids [Unknown]
  - Increased tendency to bruise [Not Recovered/Not Resolved]
  - Breast mass [Unknown]
  - Joint injury [Recovering/Resolving]
  - Intestinal polyp [Unknown]
  - Diverticulum intestinal [Unknown]
  - Anaemia [Unknown]
  - Acquired oesophageal web [Unknown]
  - Presbyoesophagus [Unknown]
  - Hiatus hernia [Unknown]
  - Eosinophilic oesophagitis [Unknown]
  - Coeliac disease [Unknown]
  - Fatigue [Unknown]
  - Vomiting [Unknown]
  - Dizziness [Unknown]
  - Nausea [Unknown]
